FAERS Safety Report 6414807-2 (Version None)
Quarter: 2009Q4

REPORT INFORMATION
  Report Type: 
  Country: None (occurrence: None)
  Receive Date: 20091026
  Receipt Date: 20091026
  Transmission Date: 20100525
  Serious: Yes (Other)
  Sender: FDA-Public Use
  Company Number: None

PATIENT
  Age: 11 Year
  Sex: Female
  Weight: 56.6996 kg

DRUGS (2)
  1. MELOXICAM [Suspect]
     Indication: BACK PAIN
     Dosage: 7.5MG 1/DAY PO
     Route: 048
     Dates: start: 20091013, end: 20091015
  2. MELOXICAM [Suspect]
     Indication: MUSCLE STRAIN
     Dosage: 7.5MG 1/DAY PO
     Route: 048
     Dates: start: 20091013, end: 20091015

REACTIONS (4)
  - FATIGUE [None]
  - LETHARGY [None]
  - MIGRAINE [None]
  - PYREXIA [None]
